FAERS Safety Report 9767778 (Version 2)
Quarter: 2014Q1

REPORT INFORMATION
  Report Type: Spontaneous
  Country: IT (occurrence: IT)
  Receive Date: 20131217
  Receipt Date: 20140220
  Transmission Date: 20141002
  Serious: Yes (Hospitalization, Other)
  Sender: FDA-Public Use
  Company Number: IT-BRISTOL-MYERS SQUIBB COMPANY-19891969

PATIENT
  Age: 80 Year
  Sex: Male

DRUGS (10)
  1. COUMADIN TABS 5 MG [Suspect]
     Indication: ATRIAL FIBRILLATION
     Route: 048
     Dates: start: 20050101, end: 20131109
  2. CARDIRENE [Suspect]
     Indication: ANGIOPLASTY
     Route: 048
     Dates: start: 20060101, end: 20131123
  3. CARVEDILOL [Concomitant]
  4. NOVORAPID [Concomitant]
     Dosage: 100 U/ML INJECTION SOLUTION
  5. LANTUS [Concomitant]
     Dosage: 100 U/ML INJECTION SOLUTION
  6. LASIX [Concomitant]
     Dosage: 25 MG TABS
  7. ZYLORIC [Concomitant]
     Dosage: 300 MG TABS
  8. SINVACOR [Concomitant]
     Dosage: 20 MG TABS
  9. HALCION [Concomitant]
     Dosage: 250 MCG TABS
  10. DITROPAN [Concomitant]
     Dosage: 5 MG TABS
     Dates: start: 20131020, end: 20131105

REACTIONS (2)
  - Haematuria [Recovered/Resolved]
  - Renal failure acute [Unknown]
